FAERS Safety Report 6608426-2 (Version None)
Quarter: 2010Q1

REPORT INFORMATION
  Report Type: 
  Country: None (occurrence: None)
  Receive Date: 20100226
  Receipt Date: 20100226
  Transmission Date: 20100710
  Serious: No
  Sender: FDA-Public Use
  Company Number: None

PATIENT
  Age: 53 Year
  Sex: Male
  Weight: 132.4503 kg

DRUGS (12)
  1. CYCLOBENZAPRINE [Suspect]
     Dosage: 10MG PO
     Route: 048
  2. ACETAMINOPHEN [Concomitant]
  3. FUROSEMIDE [Concomitant]
  4. SIMVASTATIN [Concomitant]
  5. CLONAZEPAM [Concomitant]
  6. BUPROPION HCL [Concomitant]
  7. CYMBALTA [Concomitant]
  8. ATENOLOL [Concomitant]
  9. OXYCODONE HCL [Concomitant]
  10. GABAPENTIN [Concomitant]
  11. KETOROLAC INJ [Concomitant]
  12. ASPIRIN [Concomitant]

REACTIONS (1)
  - DYSURIA [None]
